FAERS Safety Report 10196621 (Version 2)
Quarter: 2014Q2

REPORT INFORMATION
  Report Type: Spontaneous
  Country: CA (occurrence: CA)
  Receive Date: 20140527
  Receipt Date: 20140527
  Transmission Date: 20141212
  Serious: Yes (Hospitalization, Other)
  Sender: FDA-Public Use
  Company Number: CA-AMGEN-CANSP2014004407

PATIENT
  Age: 78 Year
  Sex: Male
  Weight: 88.44 kg

DRUGS (13)
  1. ENBREL [Suspect]
     Indication: RHEUMATOID ARTHRITIS
     Dosage: 50 MG, QWK
     Route: 058
     Dates: start: 20140111
  2. CEPHALEXIN [Suspect]
     Indication: BLISTER
     Dosage: 500MG 1 TABLET 4 TIMES DAILY FOR 7 DAYS
     Route: 065
  3. CEPHALEXIN [Suspect]
     Indication: PRURITUS
  4. SYNTHROID [Concomitant]
     Dosage: 0.112 MG 0.5 TABLET DAILY
  5. RIVA-METOPROLOL L [Concomitant]
     Dosage: 12.5 MG, QD (25MG 0.5 TABLET IN THE MORNING)
  6. PMS-SULFASALAZINE [Concomitant]
     Dosage: 1000 MG, BID (500MG 2 TABLETS TWICE DAILY)
  7. APO ESOMEPRAZOLE [Concomitant]
     Dosage: 40 MG, 1 TABLET DAILY
  8. APO HYDRO [Concomitant]
     Dosage: 12.5MG 1 TABLET DAILY
  9. SANDOZ MONTELUKAST [Concomitant]
     Dosage: 10 MG 1 TABLET DAILY
  10. METHOTREXATE [Concomitant]
     Indication: RHEUMATOID ARTHRITIS
     Dosage: 10 MG 1 TABLET ONCE WEEKLY
     Route: 048
     Dates: start: 20000301
  11. SULFASALAZINE [Concomitant]
     Indication: RHEUMATOID ARTHRITIS
     Dosage: 1000 UNK, BID
     Route: 048
     Dates: start: 20010112
  12. FOLIC ACID [Concomitant]
     Dosage: 5 MG 1 TABLET EVERY 2 DAYS
  13. TYLENOL                            /00020001/ [Concomitant]
     Indication: ARTHRITIS
     Dosage: UNK UNK, AS NECESSARY

REACTIONS (9)
  - Impaired healing [Not Recovered/Not Resolved]
  - Infection [Unknown]
  - Infected cyst [Recovered/Resolved]
  - Wound infection bacterial [Not Recovered/Not Resolved]
  - Abscess [Recovered/Resolved]
  - Pruritus [Not Recovered/Not Resolved]
  - Blister [Not Recovered/Not Resolved]
  - Wound [Not Recovered/Not Resolved]
  - Rash pustular [Not Recovered/Not Resolved]
